FAERS Safety Report 21492103 (Version 1)
Quarter: 2022Q4

REPORT INFORMATION
  Report Type: Spontaneous
  Country: US (occurrence: None)
  Receive Date: 20221020
  Receipt Date: 20221020
  Transmission Date: 20230112
  Serious: Yes (Death)
  Sender: FDA-Public Use
  Company Number: None

PATIENT
  Age: 66 Year
  Sex: Female

DRUGS (17)
  1. OPSUMIT [Suspect]
     Active Substance: MACITENTAN
     Indication: Pulmonary arterial hypertension
     Dosage: FREQUENCY : DAILY;?
     Route: 048
     Dates: start: 20210210, end: 20221011
  2. TADALAFIL [Concomitant]
     Active Substance: TADALAFIL
  3. GABAPENTIN [Concomitant]
     Active Substance: GABAPENTIN
  4. XOPENEX HFA [Concomitant]
     Active Substance: LEVALBUTEROL TARTRATE
  5. ESTRACE VAG CR [Concomitant]
  6. LEVOTHYROXINE [Concomitant]
     Active Substance: LEVOTHYROXINE
  7. CYTOMEL [Concomitant]
     Active Substance: LIOTHYRONINE SODIUM
  8. LASIX [Concomitant]
     Active Substance: FUROSEMIDE
  9. WIXELA INHUB [Concomitant]
     Active Substance: FLUTICASONE PROPIONATE\SALMETEROL XINAFOATE
  10. SPIRONOLACTONE [Concomitant]
     Active Substance: SPIRONOLACTONE
  11. DOXEPIN [Concomitant]
     Active Substance: DOXEPIN
  12. MIRALAX [Concomitant]
     Active Substance: POLYETHYLENE GLYCOL 3350
  13. DOCUSATE SODIUM [Concomitant]
     Active Substance: DOCUSATE SODIUM
  14. SENNA LAXATIVE [Concomitant]
     Active Substance: SENNOSIDES
  15. FOSAMAX [Concomitant]
     Active Substance: ALENDRONATE SODIUM
  16. IRON SUCROSE INJ [Concomitant]
  17. QUESTRAN [Concomitant]
     Active Substance: CHOLESTYRAMINE

REACTIONS (1)
  - Death [None]

NARRATIVE: CASE EVENT DATE: 20221011
